FAERS Safety Report 20530512 (Version 18)
Quarter: 2022Q4

REPORT INFORMATION
  Report Type: Spontaneous
  Country: CA (occurrence: CA)
  Receive Date: 20220301
  Receipt Date: 20221213
  Transmission Date: 20230113
  Serious: Yes (Hospitalization, Other)
  Sender: FDA-Public Use
  Company Number: CA-CELLTRION INC.-2021CA018768

PATIENT

DRUGS (18)
  1. INFLECTRA [Suspect]
     Active Substance: INFLIXIMAB-DYYB
     Indication: Colitis ulcerative
     Dosage: 300 MG, 0, 2, 6, THEN EVERY 8 WEEKS
     Route: 042
     Dates: start: 20211216
  2. INFLECTRA [Suspect]
     Active Substance: INFLIXIMAB-DYYB
     Dosage: 300 MG, Q 0, 2, 6, THEN EVERY 8 WEEKS
     Route: 042
     Dates: start: 20211216, end: 20220219
  3. INFLECTRA [Suspect]
     Active Substance: INFLIXIMAB-DYYB
     Dosage: 300 MG, 0, 2, 6, THEN EVERY 8 WEEKS
     Route: 042
     Dates: start: 20220118
  4. INFLECTRA [Suspect]
     Active Substance: INFLIXIMAB-DYYB
     Dosage: 300 MG, 0, 2, 6, THEN EVERY 8 WEEKS
     Route: 042
     Dates: start: 20220219
  5. INFLECTRA [Suspect]
     Active Substance: INFLIXIMAB-DYYB
     Dosage: 5 MG/KG ADDITIONAL DOSE RECEIVED IN HOSPITAL
     Route: 042
     Dates: start: 20220225, end: 20220225
  6. INFLECTRA [Suspect]
     Active Substance: INFLIXIMAB-DYYB
     Dosage: 300 MG (EVERY 4 WEEK)
     Route: 042
     Dates: start: 20220401
  7. INFLECTRA [Suspect]
     Active Substance: INFLIXIMAB-DYYB
     Dosage: 300 MG (EVERY 4 WEEK)
     Route: 042
     Dates: start: 20220518
  8. INFLECTRA [Suspect]
     Active Substance: INFLIXIMAB-DYYB
     Dosage: 300 MG (EVERY 4 WEEK)
     Route: 042
     Dates: start: 20220617
  9. INFLECTRA [Suspect]
     Active Substance: INFLIXIMAB-DYYB
     Dosage: 300 MG (EVERY 4 WEEK)
     Route: 042
     Dates: start: 20220803
  10. INFLECTRA [Suspect]
     Active Substance: INFLIXIMAB-DYYB
     Dosage: 300 MG (EVERY 4 WEEK)
     Route: 042
     Dates: start: 20220924
  11. INFLECTRA [Suspect]
     Active Substance: INFLIXIMAB-DYYB
     Dosage: 300 MG (EVERY 4 WEEK)
     Route: 042
     Dates: start: 20221021
  12. INFLECTRA [Suspect]
     Active Substance: INFLIXIMAB-DYYB
     Dosage: 300 MG (EVERY 4 WEEK)
     Route: 042
     Dates: start: 20221202
  13. MESALAMINE [Concomitant]
     Active Substance: MESALAMINE
     Dosage: UNK
  14. MESALAMINE [Concomitant]
     Active Substance: MESALAMINE
     Dosage: 1200 MG, 4X/DAY (4 TABS DAILY)
     Route: 048
  15. PENTASA [Concomitant]
     Active Substance: MESALAMINE
     Dosage: UNK
  16. PENTASA [Concomitant]
     Active Substance: MESALAMINE
     Dosage: 100 MG, DOSAGE NOT AVAILABLE
     Route: 054
  17. PREDNISONE [Concomitant]
     Active Substance: PREDNISONE
     Dosage: 5 MG
  18. PREDNISONE [Concomitant]
     Active Substance: PREDNISONE
     Dosage: 40 MG, DOSAGE NOT AVAILABLE
     Route: 065

REACTIONS (16)
  - Condition aggravated [Recovering/Resolving]
  - Therapeutic product effect incomplete [Unknown]
  - Off label use [Unknown]
  - Inappropriate schedule of product administration [Unknown]
  - Product dose omission issue [Unknown]
  - Malaise [Not Recovered/Not Resolved]
  - Rhinorrhoea [Not Recovered/Not Resolved]
  - Rash macular [Not Recovered/Not Resolved]
  - Nasopharyngitis [Recovering/Resolving]
  - Rash papular [Not Recovered/Not Resolved]
  - Acne [Not Recovered/Not Resolved]
  - Fear of injection [Unknown]
  - Diarrhoea [Unknown]
  - Oropharyngeal pain [Recovered/Resolved]
  - Dizziness [Unknown]
  - Hypotension [Unknown]

NARRATIVE: CASE EVENT DATE: 20210101
